FAERS Safety Report 5513014-5 (Version None)
Quarter: 2007Q4

REPORT INFORMATION
  Report Type: 
  Country: None (occurrence: None)
  Receive Date: 20071112
  Receipt Date: 20071101
  Transmission Date: 20080405
  Serious: Yes (Life-Threatening, Hospitalization)
  Sender: FDA-Public Use
  Company Number: AU-AMGEN-US250669

PATIENT
  Sex: Male

DRUGS (4)
  1. PANITUMUMAB [Suspect]
     Indication: SQUAMOUS CELL CARCINOMA
     Route: 042
     Dates: start: 20070823
  2. PANITUMUMAB [Suspect]
     Route: 042
     Dates: start: 20071031
  3. CISPLATIN [Concomitant]
  4. FLUOROURACIL [Concomitant]

REACTIONS (1)
  - HYPERSENSITIVITY [None]
